FAERS Safety Report 14659984 (Version 1)
Quarter: 2018Q1

REPORT INFORMATION
  Report Type: Spontaneous
  Country: DE (occurrence: DE)
  Receive Date: 20180320
  Receipt Date: 20180320
  Transmission Date: 20180509
  Serious: Yes (Life-Threatening, Other)
  Sender: FDA-Public Use
  Company Number: DE-MYLANLABS-2018M1016908

PATIENT
  Sex: Female
  Weight: 76 kg

DRUGS (6)
  1. TAVEGIL                            /00137201/ [Concomitant]
     Active Substance: CLEMASTINE FUMARATE
     Indication: PREMEDICATION
     Dosage: 1 AMPULLE
  2. GRANISETRON [Concomitant]
     Active Substance: GRANISETRON
     Indication: PREMEDICATION
  3. PACLITAXEL. [Suspect]
     Active Substance: PACLITAXEL
     Indication: ADJUVANT THERAPY
     Dosage: DOSIERUNG 149 VON 11:00 BIS 11:30
     Route: 042
  4. DEXAMETHASONE. [Concomitant]
     Active Substance: DEXAMETHASONE
     Indication: PREMEDICATION
  5. RANITIDINE. [Concomitant]
     Active Substance: RANITIDINE
     Indication: PREMEDICATION
     Dosage: 1 AMPULLE
  6. PACLITAXEL. [Suspect]
     Active Substance: PACLITAXEL
     Indication: BREAST CANCER

REACTIONS (7)
  - Hypersensitivity [Unknown]
  - Anaphylactic shock [Unknown]
  - Cyanosis [Unknown]
  - Respiratory distress [Unknown]
  - Face oedema [Unknown]
  - Blood pressure increased [Unknown]
  - Blood pressure decreased [Unknown]
